FAERS Safety Report 15747777 (Version 2)
Quarter: 2019Q1

REPORT INFORMATION
  Report Type: Spontaneous
  Country: US (occurrence: US)
  Receive Date: 20181221
  Receipt Date: 20190129
  Transmission Date: 20190417
  Serious: Yes (Other)
  Sender: FDA-Public Use
  Company Number: US-JNJFOC-20181135082

PATIENT
  Age: 63 Year
  Sex: Female

DRUGS (1)
  1. IMBRUVICA [Suspect]
     Active Substance: IBRUTINIB
     Indication: PRODUCT USED FOR UNKNOWN INDICATION
     Route: 048

REACTIONS (4)
  - Fall [Recovering/Resolving]
  - Osteoporosis [Unknown]
  - Fractured sacrum [Recovering/Resolving]
  - Dislocation of vertebra [Recovering/Resolving]

NARRATIVE: CASE EVENT DATE: 20180910
